FAERS Safety Report 20952599 (Version 2)
Quarter: 2022Q3

REPORT INFORMATION
  Report Type: Spontaneous
  Country: US (occurrence: US)
  Receive Date: 20220613
  Receipt Date: 20220816
  Transmission Date: 20221027
  Serious: No
  Sender: FDA-Public Use
  Company Number: US-GE HEALTHCARE-2022CSU001980

PATIENT
  Age: 70 Year
  Sex: Female
  Weight: 61.224 kg

DRUGS (6)
  1. OMNIPAQUE [Suspect]
     Active Substance: IOHEXOL
     Indication: Imaging procedure
     Dosage: 3 ML, SINGLE
     Route: 008
     Dates: start: 20220224, end: 20220224
  2. OMNIPAQUE [Suspect]
     Active Substance: IOHEXOL
     Indication: Back pain
     Dosage: UNK, SINGLE
     Route: 008
     Dates: start: 20211229, end: 20211229
  3. GABAPENTIN [Concomitant]
     Active Substance: GABAPENTIN
     Indication: Radiculopathy
     Route: 065
  4. SODIUM CHLORIDE [Concomitant]
     Active Substance: SODIUM CHLORIDE
     Dosage: UNK
     Route: 065
     Dates: start: 20220224, end: 20220224
  5. LIDOCAINE [Concomitant]
     Active Substance: LIDOCAINE
     Dosage: UNK
     Route: 065
     Dates: start: 20220224, end: 20220224
  6. SODIUM BICARBONATE [Concomitant]
     Active Substance: SODIUM BICARBONATE
     Dosage: UNK
     Route: 065
     Dates: start: 20220224, end: 20220224

REACTIONS (3)
  - Off label use [Recovered/Resolved]
  - Contusion [Recovered/Resolved]
  - Swelling [Recovered/Resolved]

NARRATIVE: CASE EVENT DATE: 20220224
